FAERS Safety Report 5600274-5 (Version None)
Quarter: 2007Q4

REPORT INFORMATION
  Report Type: 
  Country: None (occurrence: None)
  Receive Date: 20071226
  Receipt Date: 20070316
  Transmission Date: 20080405
  Serious: Yes (Hospitalization)
  Sender: FDA-Public Use
  Company Number: 238471

PATIENT
  Age: 32 Year
  Sex: Male
  Weight: 143.3 kg

DRUGS (5)
  1. RAPTIVA [Suspect]
     Indication: PSORIASIS
     Dosage: 1.25, 1/WEEK, SUBCUTANEOUS
     Route: 058
     Dates: start: 20061101
  2. LOTREL (AMLODIPINE BESYLATE, BENAZEPRIL HYDROCHLORIDE) [Concomitant]
  3. LEVAQUIN [Concomitant]
  4. DARVOCET (ACETAMINOPHEN, PROPOXYPHENE NAPSYLATE) [Concomitant]
  5. CELEBREX [Concomitant]

REACTIONS (1)
  - SOFT TISSUE INFECTION [None]
